FAERS Safety Report 20491866 (Version 1)
Quarter: 2022Q1

REPORT INFORMATION
  Report Type: Spontaneous
  Country: CA (occurrence: CA)
  Receive Date: 20220218
  Receipt Date: 20220218
  Transmission Date: 20220423
  Serious: Yes (Congenital Anomaly, Other)
  Sender: FDA-Public Use
  Company Number: CA-NOVARTISPH-NVSC2022CA035595

PATIENT

DRUGS (3)
  1. VALSARTAN [Suspect]
     Active Substance: VALSARTAN
     Indication: Foetal exposure during pregnancy
     Dosage: MATERNAL DOSE: UNKNOWN
     Route: 064
  2. SPIRONOLACTONE [Suspect]
     Active Substance: SPIRONOLACTONE
     Indication: Foetal exposure during pregnancy
     Dosage: MATERNAL DOSE: UNKNOWN
     Route: 064
  3. LASIX [Suspect]
     Active Substance: FUROSEMIDE
     Indication: Foetal exposure during pregnancy
     Dosage: MATERNAL DOSE: UNKNOWN
     Route: 064

REACTIONS (6)
  - Hypocalvaria [Unknown]
  - Bicuspid aortic valve [Unknown]
  - Potter^s syndrome [Unknown]
  - Limb reduction defect [Unknown]
  - Renal tubular dysfunction [Unknown]
  - Foetal exposure during pregnancy [Unknown]
